FAERS Safety Report 5881710-6 (Version None)
Quarter: 2008Q3

REPORT INFORMATION
  Report Type: 
  Country: None (occurrence: None)
  Receive Date: 20080912
  Receipt Date: 20080703
  Transmission Date: 20090109
  Serious: No
  Sender: FDA-Public Use
  Company Number: US-ABBOTT-08P-163-0460994-00

PATIENT
  Sex: Female

DRUGS (2)
  1. HUMIRA [Suspect]
     Indication: PSORIATIC ARTHROPATHY
     Route: 058
     Dates: start: 20050101
  2. METHOTREXATE [Concomitant]
     Indication: PNEUMONIA
     Dates: start: 20030101

REACTIONS (2)
  - BRONCHOSPASM [None]
  - PNEUMONIA [None]
